FAERS Safety Report 25773947 (Version 1)
Quarter: 2025Q3

REPORT INFORMATION
  Report Type: Spontaneous
  Country: EU (occurrence: None)
  Receive Date: 20250907
  Receipt Date: 20250907
  Transmission Date: 20251020
  Serious: Yes (Life-Threatening, Hospitalization, Disabling)
  Sender: FDA-CTU
  Company Number: None

PATIENT
  Age: 28 Year
  Sex: Female
  Weight: 72 kg

DRUGS (3)
  1. BRINTELLIX [Suspect]
     Active Substance: VORTIOXETINE HYDROBROMIDE
     Indication: Depression
     Dates: start: 20210101, end: 20250730
  2. VITAMIN C [Concomitant]
     Active Substance: ASCORBIC ACID
  3. FISH OIL [Concomitant]
     Active Substance: FISH OIL

REACTIONS (10)
  - Drug withdrawal syndrome [None]
  - Drug intolerance [None]
  - Autonomic nervous system imbalance [None]
  - Insomnia [None]
  - Panic attack [None]
  - Palpitations [None]
  - Dizziness [None]
  - Visual impairment [None]
  - Anhedonia [None]
  - Sensory disturbance [None]

NARRATIVE: CASE EVENT DATE: 20250730
